FAERS Safety Report 24442290 (Version 1)
Quarter: 2024Q4

REPORT INFORMATION
  Report Type: Spontaneous
  Country: US (occurrence: US)
  Receive Date: 20241016
  Receipt Date: 20241016
  Transmission Date: 20250115
  Serious: No
  Sender: SANDOZ
  Company Number: US-002147023-NVSC2023US240443

PATIENT
  Sex: Female

DRUGS (3)
  1. COMBIPATCH [Suspect]
     Active Substance: ESTRADIOL\NORETHINDRONE ACETATE
     Indication: Product used for unknown indication
     Dosage: UNK (EVERY 3-4 DAYS)
     Route: 062
     Dates: start: 20231106
  2. COMBIPATCH [Suspect]
     Active Substance: ESTRADIOL\NORETHINDRONE ACETATE
     Dosage: UNK (EVERY 3-4 DAYS)
     Route: 062
  3. ESTRADIOL [Suspect]
     Active Substance: ESTRADIOL
     Indication: Product used for unknown indication
     Dosage: UNK (EVERY 3-4 DAYS)
     Route: 062
     Dates: start: 20231105

REACTIONS (4)
  - Nausea [Recovering/Resolving]
  - Chills [Recovering/Resolving]
  - Product storage error [Recovered/Resolved]
  - Product administration error [Not Recovered/Not Resolved]

NARRATIVE: CASE EVENT DATE: 20231004
